FAERS Safety Report 7621816-4 (Version None)
Quarter: 2011Q3

REPORT INFORMATION
  Report Type: 
  Country: None (occurrence: None)
  Receive Date: 20110720
  Receipt Date: 20110712
  Transmission Date: 20111222
  Serious: Yes (Hospitalization)
  Sender: FDA-Public Use
  Company Number: US-BIOGENIDEC-2009BI026632

PATIENT
  Age: 37 Year
  Sex: Female

DRUGS (3)
  1. AVONEX [Suspect]
     Route: 030
     Dates: start: 20001113, end: 20041201
  2. AVONEX [Suspect]
     Route: 030
     Dates: start: 20100311, end: 20101101
  3. AVONEX [Suspect]
     Indication: MULTIPLE SCLEROSIS
     Route: 030
     Dates: start: 20090615, end: 20091015

REACTIONS (4)
  - LOWER LIMB FRACTURE [None]
  - HIP FRACTURE [None]
  - FALL [None]
  - UPPER LIMB FRACTURE [None]
